FAERS Safety Report 4714053-4 (Version None)
Quarter: 2005Q3

REPORT INFORMATION
  Report Type: 
  Country: None (occurrence: None)
  Receive Date: 20050712
  Receipt Date: 20050701
  Transmission Date: 20060218
  Serious: Yes (Hospitalization)
  Sender: FDA-Public Use
  Company Number: 2005S1000147

PATIENT
  Age: 38 Year
  Sex: Male

DRUGS (4)
  1. ACITRETIN (ACITRETIN) [Suspect]
     Indication: BENIGN FAMILIAL PEMPHIGUS
     Dosage: 20 MG; QD; PO
     Route: 048
     Dates: start: 20050131
  2. MINOCYCLINE [Concomitant]
  3. HYDROXYZINE HYDRECHLORIDE [Concomitant]
  4. .................. [Concomitant]

REACTIONS (11)
  - ALANINE AMINOTRANSFERASE DECREASED [None]
  - ASPARTATE AMINOTRANSFERASE INCREASED [None]
  - BLOOD TRIGLYCERIDES INCREASED [None]
  - GAMMA-GLUTAMYLTRANSFERASE INCREASED [None]
  - HAEMATOCRIT DECREASED [None]
  - HAEMOGLOBIN DECREASED [None]
  - MEAN CELL HAEMOGLOBIN CONCENTRATION INCREASED [None]
  - MEAN CELL HAEMOGLOBIN INCREASED [None]
  - PANCREATITIS [None]
  - PLATELET COUNT DECREASED [None]
  - RED BLOOD CELL COUNT DECREASED [None]
